FAERS Safety Report 9805886 (Version 1)
Quarter: 2014Q1

REPORT INFORMATION
  Report Type: Spontaneous
  Country: US (occurrence: None)
  Receive Date: 20140108
  Receipt Date: 20140108
  Transmission Date: 20141002
  Serious: No
  Sender: FDA-Public Use
  Company Number: None

PATIENT
  Age: 71 Year
  Sex: Male
  Weight: 94 kg

DRUGS (1)
  1. FENTANYL [Suspect]
     Indication: PAIN
     Route: 061
     Dates: start: 20121010, end: 20121211

REACTIONS (6)
  - Delusion [None]
  - Fall [None]
  - Dyskinesia [None]
  - Hallucination [None]
  - Asthenia [None]
  - Muscle spasms [None]
